FAERS Safety Report 20126085 (Version 1)
Quarter: 2021Q4

REPORT INFORMATION
  Report Type: Spontaneous
  Country: FR (occurrence: FR)
  Receive Date: 20211129
  Receipt Date: 20211129
  Transmission Date: 20220303
  Serious: Yes (Hospitalization, Other)
  Sender: FDA-Public Use
  Company Number: FR-TEVA-2021-FR-1941473

PATIENT
  Age: 70 Year
  Sex: Female

DRUGS (15)
  1. CARBIDOPA\LEVODOPA [Suspect]
     Active Substance: CARBIDOPA\LEVODOPA
     Indication: Product used for unknown indication
     Dosage: UNK
     Dates: start: 20180404
  2. BENSERAZIDE\LEVODOPA [Suspect]
     Active Substance: BENSERAZIDE\LEVODOPA
     Indication: Parkinson^s disease
     Dosage: 6 DOSAGE FORMS DAILY; SIX DOSAGE FORMS PER DAY AND IT WAS DECIDED TO CAREFULLY INCREASE TO 62.5 MG E
     Route: 048
     Dates: start: 2012
  3. BENSERAZIDE\LEVODOPA [Suspect]
     Active Substance: BENSERAZIDE\LEVODOPA
     Dosage: 5 DOSAGE FORMS DAILY; 50 MG/12.5 MG AT AT FIVE DOSAGE FORMS PER DAY
     Route: 048
     Dates: start: 2012
  4. BENSERAZIDE\LEVODOPA [Suspect]
     Active Substance: BENSERAZIDE\LEVODOPA
     Indication: Product used for unknown indication
     Dosage: 50 MG/12.5 MG DOSAGE OF TWO TABLETS SIX TIMES A DAY (EVERY THREE HOURS) AND
  5. BENSERAZIDE HYDROCHLORIDE\LEVODOPA [Suspect]
     Active Substance: BENSERAZIDE HYDROCHLORIDE\LEVODOPA
     Indication: Product used for unknown indication
     Dosage: 6 DOSAGE FORMS DAILY; SIX DOSAGE FORMS PER DAY AND IT WAS DECIDED TO CAREFULLY INCREASE TO 62.5 MG E
  6. BENSERAZIDE HYDROCHLORIDE\LEVODOPA [Suspect]
     Active Substance: BENSERAZIDE HYDROCHLORIDE\LEVODOPA
     Dosage: 5 DOSAGE FORMS DAILY; FIVE DOSAGE FORMS PER DAY
     Dates: start: 2012
  7. BENSERAZIDE HYDROCHLORIDE\LEVODOPA [Suspect]
     Active Substance: BENSERAZIDE HYDROCHLORIDE\LEVODOPA
     Indication: Product used for unknown indication
     Dosage: 62.5DOSAGE OF TWO TABLETS SIX TIMES A DAY (EVERY THREE HOURS) AND
     Dates: start: 20190325
  8. CARBIDOPA\LEVODOPA [Suspect]
     Active Substance: CARBIDOPA\LEVODOPA
     Indication: Parkinson^s disease
     Dosage: 100 MILLIGRAM
     Dates: start: 20180404
  9. AZILECT [Concomitant]
     Active Substance: RASAGILINE MESYLATE
     Dosage: 1 MILLIGRAM DAILY; 1 MG AT ONE DOSAGE FORM IN THE MORNING
  10. CLOZAPINE [Concomitant]
     Active Substance: CLOZAPINE
     Indication: Hallucination
     Dosage: DOSAGE OF A HALFTABLET PER DAY
  11. FOSAMAX [Concomitant]
     Active Substance: ALENDRONATE SODIUM
     Dosage: AT ONE TABLET PER WEEK
  12. ESTRADIOL [Concomitant]
     Active Substance: ESTRADIOL
     Dosage: AT ONE DOSE EVERY EVENING
  13. PRAMIPEXOLE [Concomitant]
     Active Substance: PRAMIPEXOLE
     Dosage: 1.05 MILLIGRAM DAILY; 1.05 MG AT ONE DOSAGE FORM IN THE MORNING
  14. MELATONIN [Concomitant]
     Active Substance: MELATONIN
     Dosage: 3 MG BEFORE BEDTIME
  15. XANAX [Concomitant]
     Active Substance: ALPRAZOLAM
     Indication: Anxiety

REACTIONS (21)
  - Dyspnoea [Unknown]
  - Flushing [Unknown]
  - Anxiety [Not Recovered/Not Resolved]
  - Fear [Not Recovered/Not Resolved]
  - Camptocormia [Unknown]
  - Choking [Not Recovered/Not Resolved]
  - Amimia [Unknown]
  - Screaming [Not Recovered/Not Resolved]
  - Hyperventilation [Unknown]
  - Drug intolerance [Unknown]
  - Microcytosis [Unknown]
  - Cognitive disorder [Unknown]
  - Drug ineffective [Unknown]
  - Hallucination [Not Recovered/Not Resolved]
  - Tremor [Not Recovered/Not Resolved]
  - Dysphonia [Unknown]
  - Feeling abnormal [Unknown]
  - Depression [Not Recovered/Not Resolved]
  - Arthropathy [Unknown]
  - Agitation [Not Recovered/Not Resolved]
  - On and off phenomenon [Not Recovered/Not Resolved]

NARRATIVE: CASE EVENT DATE: 20181001
